FAERS Safety Report 24667298 (Version 2)
Quarter: 2024Q4

REPORT INFORMATION
  Report Type: Spontaneous
  Country: US (occurrence: US)
  Receive Date: 20241126
  Receipt Date: 20241210
  Transmission Date: 20250115
  Serious: Yes (Other)
  Sender: APELLIS PHARMACEUTICALS
  Company Number: US-APELLIS-2024-APL-0000915

PATIENT

DRUGS (1)
  1. SYFOVRE [Suspect]
     Active Substance: PEGCETACOPLAN
     Indication: Product used for unknown indication
     Dosage: INJECT CONTENTS OF 1 VIAL INTO BOTH EYES EVERY 4 TO 6 WEEKS
     Route: 031

REACTIONS (2)
  - Visual impairment [Unknown]
  - Drug ineffective [Unknown]
